FAERS Safety Report 17537053 (Version 1)
Quarter: 2020Q1

REPORT INFORMATION
  Report Type: Spontaneous
  Country: US (occurrence: US)
  Receive Date: 20200305
  Receipt Date: 20200305
  Transmission Date: 20200409
  Serious: Yes (Hospitalization)
  Sender: FDA-Public Use
  Company Number: None

PATIENT
  Age: 48 Year
  Sex: Male

DRUGS (1)
  1. ALBUMIN [Suspect]
     Active Substance: ALBUMIN HUMAN
     Indication: HEPATIC CIRRHOSIS
     Dates: start: 20190806

REACTIONS (11)
  - Anaphylactic reaction [None]
  - Tachycardia [None]
  - Infusion related reaction [None]
  - Dyspnoea [None]
  - Hypoaesthesia oral [None]
  - Ear pruritus [None]
  - Hypotension [None]
  - Headache [None]
  - Lip swelling [None]
  - Angioedema [None]
  - Nausea [None]

NARRATIVE: CASE EVENT DATE: 20190806
